FAERS Safety Report 6003911-9 (Version None)
Quarter: 2008Q4

REPORT INFORMATION
  Report Type: 
  Country: None (occurrence: None)
  Receive Date: 20081216
  Receipt Date: 20081210
  Transmission Date: 20090506
  Serious: No
  Sender: FDA-Public Use
  Company Number: US-BAYER-200840469NA

PATIENT
  Age: 35 Year
  Sex: Female

DRUGS (1)
  1. YASMIN [Suspect]
     Indication: DRUG USE FOR UNKNOWN INDICATION
     Route: 048

REACTIONS (8)
  - BREAST ENLARGEMENT [None]
  - BREAST TENDERNESS [None]
  - CHEST PAIN [None]
  - FATIGUE [None]
  - LIBIDO DECREASED [None]
  - MUSCLE SPASMS [None]
  - THIRST [None]
  - WEIGHT INCREASED [None]
